FAERS Safety Report 5054176-6 (Version None)
Quarter: 2006Q3

REPORT INFORMATION
  Report Type: 
  Country: None (occurrence: None)
  Receive Date: 20060713
  Receipt Date: 20060703
  Transmission Date: 20061208
  Serious: Yes (Hospitalization, Other)
  Sender: FDA-Public Use
  Company Number: 2006BI007152

PATIENT
  Age: 48 Year
  Sex: Female
  Weight: 65.7716 kg

DRUGS (6)
  1. AVONEX [Suspect]
     Indication: MULTIPLE SCLEROSIS
     Dosage: 30 UG; QW; IM
     Route: 030
     Dates: start: 19980101, end: 20030801
  2. AVONEX [Suspect]
     Indication: MULTIPLE SCLEROSIS
     Dosage: 30 UG; QW; IM
     Route: 030
     Dates: start: 20030801
  3. KLONOPIN [Concomitant]
  4. ZOLOFT [Concomitant]
  5. ESTRACE [Concomitant]
  6. ZANAFLEX [Concomitant]

REACTIONS (11)
  - ANTIPHOSPHOLIPID SYNDROME [None]
  - BLOOD PRESSURE DECREASED [None]
  - CARDIAC FAILURE CONGESTIVE [None]
  - CHILLS [None]
  - COLITIS ISCHAEMIC [None]
  - FALL [None]
  - MOVEMENT DISORDER [None]
  - MUSCLE SPASMS [None]
  - PHARMACEUTICAL PRODUCT COMPLAINT [None]
  - SCAN ABDOMEN ABNORMAL [None]
  - URINARY INCONTINENCE [None]
